FAERS Safety Report 12811277 (Version 1)
Quarter: 2016Q4

REPORT INFORMATION
  Report Type: Spontaneous
  Country: US (occurrence: US)
  Receive Date: 20161005
  Receipt Date: 20161005
  Transmission Date: 20170207
  Serious: No
  Sender: FDA-Public Use
  Company Number: None

PATIENT
  Age: 80 Year
  Sex: Female
  Weight: 79.38 kg

DRUGS (9)
  1. JANUVIA [Concomitant]
     Active Substance: SITAGLIPTIN PHOSPHATE
  2. PILOCARPINE. [Concomitant]
     Active Substance: PILOCARPINE
  3. HYOSCYAMINE SULFATE 0.125MG TABLETS [Suspect]
     Active Substance: HYOSCYAMINE SULFATE
     Indication: ABDOMINAL PAIN UPPER
     Route: 048
     Dates: start: 20160908, end: 20160909
  4. HYDROCODONE W/AMITTRIPTOLENE [Concomitant]
  5. VITAMIN C [Concomitant]
     Active Substance: ASCORBIC ACID
  6. LANTUS SOLOSTAR [Concomitant]
     Active Substance: INSULIN GLARGINE
  7. ZINC [Concomitant]
     Active Substance: ZINC\ZINC CHLORIDE
  8. VITAMIN D3 [Concomitant]
     Active Substance: CHOLECALCIFEROL
  9. GABAPENTIN. [Concomitant]
     Active Substance: GABAPENTIN

REACTIONS (2)
  - Dizziness [None]
  - Nausea [None]

NARRATIVE: CASE EVENT DATE: 20160910
